FAERS Safety Report 6135689-2 (Version None)
Quarter: 2009Q1

REPORT INFORMATION
  Report Type: 
  Country: None (occurrence: None)
  Receive Date: 20090327
  Receipt Date: 20090326
  Transmission Date: 20090719
  Serious: Yes (Hospitalization)
  Sender: FDA-Public Use
  Company Number: GB-PURDUE-GBR_2009_0004917

PATIENT
  Age: 51 Year
  Sex: Male

DRUGS (7)
  1. OXYCONTIN [Suspect]
     Indication: PAIN
     Dosage: 50 MG, BID
     Route: 048
     Dates: start: 20090224, end: 20090225
  2. TRANSTEC 52.5 [Suspect]
     Indication: BACK PAIN
     Dosage: 52.5 MCG, Q1H
     Route: 062
  3. TRANSTEC 52.5 [Suspect]
     Dosage: 70 MCG, Q1H
     Route: 062
     Dates: start: 20090201
  4. OXYNORM [Suspect]
     Indication: PAIN
     Dosage: UNK, PRN
     Route: 048
     Dates: start: 20090224, end: 20090225
  5. TRAMADOL                           /00599202/ [Concomitant]
     Indication: DRUG USE FOR UNKNOWN INDICATION
     Dosage: 100 MG, QID
     Route: 065
  6. NEFOPAM [Concomitant]
     Indication: DRUG USE FOR UNKNOWN INDICATION
     Dosage: 60 MG, TID
     Route: 065
  7. ACETAMINOPHEN W/ CODEINE [Concomitant]
     Indication: DRUG USE FOR UNKNOWN INDICATION
     Dosage: 2 DF, QID
     Route: 065

REACTIONS (5)
  - ANXIETY [None]
  - DRUG INEFFECTIVE [None]
  - FEELING ABNORMAL [None]
  - INSOMNIA [None]
  - PALLOR [None]
